FAERS Safety Report 8098239-X (Version None)
Quarter: 2012Q1

REPORT INFORMATION
  Report Type: 
  Country: None (occurrence: None)
  Receive Date: 20120128
  Receipt Date: 20110808
  Transmission Date: 20120608
  Serious: No
  Sender: FDA-Public Use
  Company Number: US-ABBOTT-11P-163-0840258-00

PATIENT
  Sex: Female

DRUGS (9)
  1. HUMIRA [Suspect]
     Indication: RHEUMATOID ARTHRITIS
     Dates: start: 20101001, end: 20101001
  2. PREDNISONE [Concomitant]
     Indication: RHEUMATOID ARTHRITIS
  3. IMIPRAMINE [Concomitant]
     Indication: URINARY INCONTINENCE
  4. VITAMIN TAB [Concomitant]
     Indication: VITAMIN SUPPLEMENTATION
  5. PRAVASTATIN [Concomitant]
     Indication: HYPERLIPIDAEMIA
  6. LEFLUNOMIDE [Concomitant]
     Indication: RHEUMATOID ARTHRITIS
  7. ASPIRIN [Concomitant]
     Indication: ANTICOAGULANT THERAPY
  8. PRISTIQ [Concomitant]
     Indication: DEPRESSION
  9. TOPROL-XL [Concomitant]
     Indication: CARDIAC FAILURE CONGESTIVE

REACTIONS (3)
  - NAUSEA [None]
  - PSORIASIS [None]
  - HELICOBACTER GASTRITIS [None]
